FAERS Safety Report 8012257-9 (Version None)
Quarter: 2011Q4

REPORT INFORMATION
  Report Type: 
  Country: None (occurrence: None)
  Receive Date: 20111228
  Receipt Date: 20111215
  Transmission Date: 20120403
  Serious: Yes (Other)
  Sender: FDA-Public Use
  Company Number: US-PFIZER INC-HQWYE804203FEB04

PATIENT
  Sex: Male

DRUGS (11)
  1. EFFEXOR [Suspect]
     Dosage: 50 MG ONE-HALF TABLET BY MOUTH AT BED TIME
     Route: 048
     Dates: start: 20010711
  2. EFFEXOR XR [Suspect]
     Dosage: 5 MG, UNK
     Dates: start: 20110905, end: 20110919
  3. EFFEXOR [Suspect]
     Indication: DEPRESSION
     Dosage: TITRATED UPT TO 300 MG DAILY OVER THE COURSE OF THREE WEEKS
     Route: 048
  4. EFFEXOR XR [Suspect]
     Indication: SOCIAL PHOBIA
     Dosage: 75 MG, 2X/DAY
     Dates: start: 20010601, end: 20010627
  5. EFFEXOR XR [Suspect]
     Dosage: 20 MG, UNK
     Dates: start: 20010726, end: 20010808
  6. EFFEXOR XR [Suspect]
     Dosage: 15 MG, UNK
     Dates: start: 20010809, end: 20010822
  7. PAXIL [Suspect]
     Indication: SOCIAL PHOBIA
     Dosage: 20 MG, 1X/DAY
     Dates: start: 20000306
  8. EFFEXOR XR [Suspect]
     Dosage: 10 MG, UNK
     Dates: start: 20010823, end: 20010905
  9. PAXIL [Suspect]
     Indication: DEPRESSION
     Dosage: 40 MG, 1X/DAY
     Dates: end: 20010101
  10. EFFEXOR [Suspect]
     Indication: SOCIAL PHOBIA
     Dosage: 75 MG, 1X/DAY
     Route: 048
     Dates: start: 20010101
  11. EFFEXOR XR [Suspect]
     Dosage: 37.5 MG, UNK
     Dates: start: 20010629, end: 20010725

REACTIONS (9)
  - FEELING ABNORMAL [None]
  - HEADACHE [None]
  - HOMICIDAL IDEATION [None]
  - AMNESIA [None]
  - SOMNOLENCE [None]
  - SUICIDAL IDEATION [None]
  - AGGRESSION [None]
  - PARAESTHESIA [None]
  - DIZZINESS [None]
